FAERS Safety Report 4350663-4 (Version None)
Quarter: 2004Q2

REPORT INFORMATION
  Report Type: 
  Country: None (occurrence: None)
  Receive Date: 20040429
  Receipt Date: 20040415
  Transmission Date: 20050107
  Serious: Yes (Death, Life-Threatening, Hospitalization, Disabling, Other)
  Sender: FDA-Public Use
  Company Number: A-CH2004-05205

PATIENT
  Age: 9 Year
  Sex: Female
  Weight: 21 kg

DRUGS (6)
  1. TRACLEER [Suspect]
     Indication: PULMONARY HYPERTENSION
     Dosage: 15 MG, BID, ORAL; SEE IMAGE
     Route: 048
     Dates: start: 20031203, end: 20040106
  2. TRACLEER [Suspect]
     Indication: PULMONARY HYPERTENSION
     Dosage: 15 MG, BID, ORAL; SEE IMAGE
     Route: 048
     Dates: start: 20040107, end: 20040209
  3. CAPTOPRIL [Concomitant]
  4. LASIX [Concomitant]
  5. ALDACTONE [Concomitant]
  6. PREVISCAN (FLUINDIONE) [Concomitant]

REACTIONS (5)
  - ANGIOPATHY [None]
  - CARDIAC FAILURE [None]
  - CARDIOMYOPATHY [None]
  - INTRACARDIAC THROMBUS [None]
  - PULMONARY HYPERTENSION [None]
